FAERS Safety Report 8756078 (Version 2)
Quarter: 2012Q4

REPORT INFORMATION
  Report Type: 
  Country: US (occurrence: US)
  Receive Date: 20120828
  Receipt Date: 20121012
  Transmission Date: 20130627
  Serious: No
  Sender: FDA-Public Use
  Company Number: US-PFIZER INC-2012208061

PATIENT
  Age: 67 Year
  Sex: Male
  Weight: 63.49 kg

DRUGS (10)
  1. DEPO-TESTOSTERONE [Suspect]
     Indication: HYPOGONADISM
     Dosage: 200 mg (0.5ml) every 2 weeks
     Route: 030
     Dates: start: 20120329
  2. METFORMIN [Concomitant]
     Indication: TYPE 2 DIABETES MELLITUS
     Dosage: 850 mg, three times a day
     Route: 048
  3. LISINOPRIL [Concomitant]
     Indication: HYPERTENSION
     Dosage: 2.5 mg, once a day
     Route: 048
  4. ASPIRIN [Concomitant]
     Indication: TYPE 2 DIABETES MELLITUS
     Dosage: 81 mg, once a day
     Route: 048
  5. VYTORIN [Concomitant]
     Indication: TYPE 2 DIABETES MELLITUS
     Dosage: 10/20 mg, once a day
  6. FOSAMAX [Concomitant]
     Indication: BONE DENSITY DECREASED
     Dosage: 70 mg, weekly
     Route: 048
  7. FOSAMAX [Concomitant]
     Indication: OSTEOPENIA
  8. CALCIUM WITH VITAMIN D [Concomitant]
     Indication: BONE DENSITY DECREASED
     Dosage: 500 mg/200 IU, two times a day
  9. IRON [Concomitant]
     Indication: IRON DEFICIENCY
     Dosage: 325 mg, 1x/day
     Route: 048
  10. FISH OIL [Concomitant]
     Indication: HYPERLIPIDAEMIA
     Dosage: 1000 mg, 1x/day
     Route: 048

REACTIONS (2)
  - Drug level increased [Unknown]
  - Wrong technique in drug usage process [Unknown]
